FAERS Safety Report 9562601 (Version 1)
Quarter: 2013Q3

REPORT INFORMATION
  Report Type: Spontaneous
  Country: US (occurrence: None)
  Receive Date: 20130926
  Receipt Date: 20130926
  Transmission Date: 20140515
  Serious: No
  Sender: FDA-Public Use
  Company Number: None

PATIENT
  Sex: Female

DRUGS (1)
  1. ENBREL 50 MG AMGEN [Suspect]
     Route: 058
     Dates: start: 20130820

REACTIONS (1)
  - Dysgeusia [None]
